FAERS Safety Report 10067465 (Version 1)
Quarter: 2014Q2

REPORT INFORMATION
  Report Type: Spontaneous
  Country: CH (occurrence: None)
  Receive Date: 20140407
  Receipt Date: 20140407
  Transmission Date: 20141212
  Serious: Yes (Hospitalization)
  Sender: FDA-Public Use
  Company Number: CH-015138

PATIENT
  Age: 29 Year
  Sex: Female
  Weight: 64 kg

DRUGS (5)
  1. MENOPUR [Suspect]
     Indication: IN VITRO FERTILISATION
     Dosage: (150 IU QD, 75 I.E. SUBCUTANEOUS)
     Route: 058
     Dates: start: 20140225, end: 20140307
  2. OVITRELLE [Suspect]
     Indication: IN VITRO FERTILISATION
     Route: 058
     Dates: start: 20140308, end: 20140308
  3. ELEVIT PRONATAL [Concomitant]
  4. CRINONE [Concomitant]
  5. DAFALGAN [Concomitant]

REACTIONS (7)
  - Ovarian hyperstimulation syndrome [None]
  - Pyrexia [None]
  - Chills [None]
  - Dizziness [None]
  - Presyncope [None]
  - Decreased appetite [None]
  - Weight increased [None]
